FAERS Safety Report 4358682-9 (Version None)
Quarter: 2004Q2

REPORT INFORMATION
  Report Type: 
  Country: None (occurrence: None)
  Receive Date: 20040511
  Receipt Date: 20040429
  Transmission Date: 20050107
  Serious: Yes (Death)
  Sender: FDA-Public Use
  Company Number: 04P-163-0251566-00

PATIENT
  Age: 54 Year
  Sex: Male

DRUGS (3)
  1. NORVIR [Suspect]
     Indication: HIV INFECTION
     Dosage: 400 MG, PER ORAL
     Route: 048
     Dates: start: 20040210
  2. TIPRANAVIR [Concomitant]
  3. ENFUVIRTIDE [Concomitant]

REACTIONS (18)
  - CARDIAC MURMUR [None]
  - CARDIO-RESPIRATORY ARREST [None]
  - CLOSTRIDIAL INFECTION [None]
  - COMPUTERISED TOMOGRAM ABNORMAL [None]
  - CONVULSION [None]
  - CORONARY ARTERY ATHEROSCLEROSIS [None]
  - CORONARY ARTERY DISEASE [None]
  - CORONARY ARTERY OCCLUSION [None]
  - GASTRIC DISORDER [None]
  - HAEMATEMESIS [None]
  - NAUSEA [None]
  - OESOPHAGEAL ULCER [None]
  - OSTEOPOROSIS [None]
  - PETECHIAE [None]
  - PNEUMONIA [None]
  - SEPSIS [None]
  - VENTRICULAR HYPERTROPHY [None]
  - VOMITING [None]
